FAERS Safety Report 15736632 (Version 1)
Quarter: 2018Q4

REPORT INFORMATION
  Report Type: Spontaneous
  Country: US (occurrence: US)
  Receive Date: 20181204
  Receipt Date: 20181204
  Transmission Date: 20190205
  Serious: Yes (Other)
  Sender: FDA-Public Use
  Company Number: None

PATIENT
  Age: 81 Year
  Sex: Female
  Weight: 60.75 kg

DRUGS (4)
  1. EYLEA [Suspect]
     Active Substance: AFLIBERCEPT
     Indication: MACULAR OEDEMA
     Route: 047
     Dates: start: 20131207, end: 20140410
  2. ATENOLOL. [Concomitant]
     Active Substance: ATENOLOL
  3. VITAMIN D [Concomitant]
     Active Substance: CHOLECALCIFEROL
  4. SYNTHROLD [Concomitant]

REACTIONS (1)
  - Infection [None]

NARRATIVE: CASE EVENT DATE: 20131207
